FAERS Safety Report 17575821 (Version 1)
Quarter: 2020Q1

REPORT INFORMATION
  Report Type: Spontaneous
  Country: US (occurrence: US)
  Receive Date: 20200318
  Receipt Date: 20200318
  Transmission Date: 20200409
  Serious: Yes (Hospitalization)
  Sender: FDA-Public Use
  Company Number: None

PATIENT
  Age: 67 Year

DRUGS (29)
  1. ATORVASTATIN [Concomitant]
     Active Substance: ATORVASTATIN
  2. POT CHLORIDE [Concomitant]
     Active Substance: POTASSIUM CHLORIDE
  3. BENZONATATE. [Concomitant]
     Active Substance: BENZONATATE
  4. HUMIRA [Suspect]
     Active Substance: ADALIMUMAB
     Indication: RECTAL ULCER HAEMORRHAGE
     Route: 058
     Dates: start: 20160119
  5. COLESEVELAM [Concomitant]
     Active Substance: COLESEVELAM
  6. CREON [Concomitant]
     Active Substance: PANCRELIPASE AMYLASE\PANCRELIPASE LIPASE\PANCRELIPASE PROTEASE
  7. SUPREP BOWEL SOL PREP KIT [Concomitant]
  8. HYDROCO/APAP [Concomitant]
     Active Substance: ACETAMINOPHEN\HYDROCODONE
  9. SMZ/TMP [Concomitant]
     Active Substance: SULFAMETHOXAZOLE\TRIMETHOPRIM
  10. AZITHROMYCIN ANHYDROUS. [Concomitant]
     Active Substance: AZITHROMYCIN ANHYDROUS
  11. METRONIZADOL [Concomitant]
  12. HYDROCHLOROT [Concomitant]
     Active Substance: HYDROCHLOROTHIAZIDE
  13. BENAZEPRIL [Concomitant]
     Active Substance: BENAZEPRIL HYDROCHLORIDE
  14. PREDNISONE. [Concomitant]
     Active Substance: PREDNISONE
  15. AMLODIPINE [Concomitant]
     Active Substance: AMLODIPINE BESYLATE
  16. AZEIAL ACID [Concomitant]
  17. CIPROFLOXACIN. [Concomitant]
     Active Substance: CIPROFLOXACIN
  18. AMIOD/BENAZ [Concomitant]
  19. OMEPRAZOLE. [Concomitant]
     Active Substance: OMEPRAZOLE
  20. BALSALAZIDE [Concomitant]
     Active Substance: BALSALAZIDE
  21. METHYLPRED [Concomitant]
     Active Substance: METHYLPREDNISOLONE
  22. CEPHALEXIN. [Concomitant]
     Active Substance: CEPHALEXIN
  23. HYDROCHLOROT [Concomitant]
     Active Substance: HYDROCHLOROTHIAZIDE
  24. BUDESONIDE. [Concomitant]
     Active Substance: BUDESONIDE
  25. TRAMADOL HYDROCHLORIDE. [Concomitant]
     Active Substance: TRAMADOL HYDROCHLORIDE
  26. METOPROL SUC [Concomitant]
  27. ZOLPIDEN [Concomitant]
     Active Substance: ZOLPIDEM TARTRATE
  28. METHYPRED [Concomitant]
  29. ZOLPIDEM [Concomitant]
     Active Substance: ZOLPIDEM TARTRATE

REACTIONS (4)
  - Colitis ulcerative [None]
  - Respiratory disorder [None]
  - Nasopharyngitis [None]
  - Weight decreased [None]

NARRATIVE: CASE EVENT DATE: 202001
